FAERS Safety Report 6242849-9 (Version None)
Quarter: 2009Q2

REPORT INFORMATION
  Report Type: 
  Country: None (occurrence: None)
  Receive Date: 20090624
  Receipt Date: 20090618
  Transmission Date: 20091009
  Serious: Yes (Other)
  Sender: FDA-Public Use
  Company Number: A0793389A

PATIENT
  Sex: Female

DRUGS (1)
  1. LAMICTAL [Suspect]
     Indication: BIPOLAR DISORDER
     Dosage: 50MG CUMULATIVE DOSE
     Route: 048

REACTIONS (12)
  - ANGER [None]
  - BIPOLAR DISORDER [None]
  - DEPRESSION [None]
  - DIZZINESS [None]
  - ELEVATED MOOD [None]
  - ERYTHEMA [None]
  - HEADACHE [None]
  - MOOD SWINGS [None]
  - PARAESTHESIA [None]
  - SUICIDAL IDEATION [None]
  - VIOLENCE-RELATED SYMPTOM [None]
  - VISION BLURRED [None]
